FAERS Safety Report 9248864 (Version 2)
Quarter: 2013Q2

REPORT INFORMATION
  Report Type: Spontaneous
  Country: DE (occurrence: DE)
  Receive Date: 20130423
  Receipt Date: 20130507
  Transmission Date: 20140414
  Serious: Yes (Other)
  Sender: FDA-Public Use
  Company Number: DE-ELI_LILLY_AND_COMPANY-DE201304004007

PATIENT
  Sex: Male

DRUGS (1)
  1. STRATTERA [Suspect]
     Indication: ATTENTION DEFICIT/HYPERACTIVITY DISORDER
     Dosage: 100 MG, UNKNOWN
     Route: 048
     Dates: end: 201202

REACTIONS (7)
  - Meningitis [Not Recovered/Not Resolved]
  - Immunodeficiency [Not Recovered/Not Resolved]
  - Pneumonia [Not Recovered/Not Resolved]
  - Borrelia infection [Not Recovered/Not Resolved]
  - Paralysis [Not Recovered/Not Resolved]
  - Bronchitis [Not Recovered/Not Resolved]
  - Prescribed overdose [Not Recovered/Not Resolved]
